FAERS Safety Report 5585783-X (Version None)
Quarter: 2007Q4

REPORT INFORMATION
  Report Type: 
  Country: None (occurrence: None)
  Receive Date: 20071203
  Receipt Date: 20070303
  Transmission Date: 20080405
  Serious: Yes (Other)
  Sender: FDA-Public Use
  Company Number: 2007017150

PATIENT
  Sex: Female
  Weight: 45.4 kg

DRUGS (5)
  1. ZYVOX [Suspect]
     Indication: PROPHYLAXIS
  2. LISINOPRIL [Concomitant]
  3. VITAMIN B COMPLEX CAP [Concomitant]
  4. IRON (IRON) [Concomitant]
  5. ASPIRIN [Concomitant]

REACTIONS (4)
  - COLOUR BLINDNESS [None]
  - GASTRIC DISORDER [None]
  - MALABSORPTION [None]
  - VISUAL ACUITY REDUCED [None]
